FAERS Safety Report 7023435-X (Version None)
Quarter: 2010Q3

REPORT INFORMATION
  Report Type: 
  Country: None (occurrence: None)
  Receive Date: 20100930
  Receipt Date: 20100917
  Transmission Date: 20110219
  Serious: Yes (Hospitalization)
  Sender: FDA-Public Use
  Company Number: NL-WATSON-2010-12835

PATIENT
  Age: 42 Year
  Sex: Male

DRUGS (2)
  1. CLARITHROMYCIN [Suspect]
     Indication: PULMONARY TUBERCULOSIS
     Dosage: 1000 MG, DAILY
  2. LINEZOLID [Suspect]
     Indication: PULMONARY TUBERCULOSIS
     Dosage: UNK

REACTIONS (2)
  - DRUG INTERACTION [None]
  - DRUG LEVEL INCREASED [None]
